FAERS Safety Report 9803818 (Version 1)
Quarter: 2014Q1

REPORT INFORMATION
  Report Type: Spontaneous
  Country: US (occurrence: US)
  Receive Date: 20140108
  Receipt Date: 20140108
  Transmission Date: 20141002
  Serious: No
  Sender: FDA-Public Use
  Company Number: US-GLAXOSMITHKLINE-A1044366A

PATIENT
  Age: 75 Year
  Sex: Male

DRUGS (12)
  1. LOVAZA [Suspect]
     Indication: CARDIAC DISORDER
     Dosage: 2CAP PER DAY
     Route: 048
  2. NAMENDA [Concomitant]
  3. CRESTOR [Concomitant]
  4. CITALOPRAM [Concomitant]
  5. TRAZODONE [Concomitant]
  6. SEROQUEL [Concomitant]
  7. LAMOTRIGINE [Concomitant]
  8. PLAVIX [Concomitant]
  9. TAMSULOSIN [Concomitant]
  10. CENTRUM SILVER [Concomitant]
  11. VITAMIN C [Concomitant]
  12. FOLIC ACID [Concomitant]

REACTIONS (3)
  - Wrong technique in drug usage process [Unknown]
  - Underdose [Unknown]
  - Dysphagia [Unknown]
